FAERS Safety Report 12674881 (Version 6)
Quarter: 2017Q1

REPORT INFORMATION
  Report Type: Spontaneous
  Country: NO (occurrence: NO)
  Receive Date: 20160823
  Receipt Date: 20170207
  Transmission Date: 20170428
  Serious: Yes (Life-Threatening, Hospitalization, Other)
  Sender: FDA-Public Use
  Company Number: DE-ASTRAZENECA-2016SE88142

PATIENT
  Age: 40 Year
  Sex: Female

DRUGS (6)
  1. LIPITOR [Concomitant]
     Active Substance: ATORVASTATIN CALCIUM
     Indication: HYPERCHOLESTEROLAEMIA
  2. LIPITOR [Concomitant]
     Active Substance: ATORVASTATIN CALCIUM
     Indication: PRODUCT USED FOR UNKNOWN INDICATION
  3. ATORVASTATIN [Concomitant]
     Active Substance: ATORVASTATIN
  4. OMEPRAZOLE. [Suspect]
     Active Substance: OMEPRAZOLE
     Indication: PRODUCT USED FOR UNKNOWN INDICATION
     Dosage: 20 TO 40 MG, DAILY
     Route: 048
     Dates: start: 2002, end: 2015
  5. LIPITOR [Concomitant]
     Active Substance: ATORVASTATIN CALCIUM
     Indication: EUPHORIC MOOD
  6. CERAZETTE [Concomitant]
     Active Substance: DESOGESTREL
     Indication: CONTRACEPTION

REACTIONS (12)
  - Torsade de pointes [Unknown]
  - Dehydration [Unknown]
  - Nausea [Unknown]
  - Ventricular arrhythmia [Recovering/Resolving]
  - Stress [Unknown]
  - Fatigue [Unknown]
  - Hypomagnesaemia [Recovered/Resolved]
  - Acute kidney injury [Recovering/Resolving]
  - Cardiac arrest [Recovering/Resolving]
  - Seizure [Unknown]
  - Cyanosis [Unknown]
  - Diarrhoea [Unknown]

NARRATIVE: CASE EVENT DATE: 20150417
